FAERS Safety Report 16034811 (Version 1)
Quarter: 2019Q1

REPORT INFORMATION
  Report Type: Spontaneous
  Country: US (occurrence: US)
  Receive Date: 20190205
  Receipt Date: 20190205
  Transmission Date: 20190418
  Serious: No
  Sender: FDA-Public Use
  Company Number: None

PATIENT
  Age: 61 Year
  Sex: Female

DRUGS (1)
  1. SUTENT [Suspect]
     Active Substance: SUNITINIB MALATE
     Route: 048
     Dates: start: 20181105

REACTIONS (3)
  - Decreased appetite [None]
  - Fatigue [None]
  - Abdominal discomfort [None]

NARRATIVE: CASE EVENT DATE: 20190204
